FAERS Safety Report 8343164 (Version 6)
Quarter: 2012Q4

REPORT INFORMATION
  Report Type: 
  Country: US (occurrence: US)
  Receive Date: 20111202
  Receipt Date: 20121011
  Transmission Date: 20130627
  Serious: Yes (Hospitalization, Disabling, Other)
  Sender: FDA-Public Use
  Company Number: US-009507513-2011SP045605

PATIENT

DRUGS (2)
  1. NUVARING [Suspect]
     Indication: CONTRACEPTION
     Route: 067
     Dates: start: 2006, end: 20080924
  2. SYNTHROID [Concomitant]
     Indication: HYPOTHYROIDISM
     Dosage: 0.05 mg, QD
     Route: 048
     Dates: start: 200012

REACTIONS (19)
  - Biliary dyskinesia [Unknown]
  - Deep vein thrombosis [Not Recovered/Not Resolved]
  - Pulmonary embolism [Recovered/Resolved]
  - Thrombosis [Unknown]
  - Hepatic steatosis [Unknown]
  - Thyroxine increased [Unknown]
  - Drug hypersensitivity [Unknown]
  - Drug hypersensitivity [Unknown]
  - Diarrhoea [Unknown]
  - Neck pain [Unknown]
  - Gastroenteritis viral [Unknown]
  - Endometrial ablation [Unknown]
  - Female sterilisation [Unknown]
  - Cholecystectomy [Unknown]
  - Ovarian cyst [Unknown]
  - Post thrombotic syndrome [Unknown]
  - Venous injury [Unknown]
  - Dyspnoea [Unknown]
  - Chest pain [Unknown]
